FAERS Safety Report 6458977-9 (Version None)
Quarter: 2009Q4

REPORT INFORMATION
  Report Type: 
  Country: None (occurrence: None)
  Receive Date: 20091125
  Receipt Date: 20091125
  Transmission Date: 20100525
  Serious: Yes (Other)
  Sender: FDA-Public Use
  Company Number: None

PATIENT
  Age: 80 Year
  Sex: Male
  Weight: 81.6475 kg

DRUGS (1)
  1. FLOMAX [Suspect]
     Indication: URINARY TRACT DISORDER
     Dosage: 1 1 A DAY
     Dates: start: 20090917

REACTIONS (3)
  - NIPPLE PAIN [None]
  - PRURITUS GENERALISED [None]
  - URTICARIA [None]
